FAERS Safety Report 8763457 (Version 2)
Quarter: 2012Q4

REPORT INFORMATION
  Report Type: Spontaneous
  Country: US (occurrence: None)
  Receive Date: 20120828
  Receipt Date: 20120907
  Transmission Date: 20130627
  Serious: Yes (Other)
  Sender: FDA-Public Use
  Company Number: CRC-12-407

PATIENT
  Age: 45 Year
  Sex: Male

DRUGS (1)
  1. LIPODOX INJECTION 2MG/ML MFG/LABEL: SUN PHARMA [Suspect]
     Indication: LEIOMYOSARCOMA

REACTIONS (1)
  - No therapeutic response [None]
